FAERS Safety Report 12827787 (Version 1)
Quarter: 2016Q4

REPORT INFORMATION
  Report Type: Spontaneous
  Country: FR (occurrence: FR)
  Receive Date: 20161006
  Receipt Date: 20161006
  Transmission Date: 20170207
  Serious: Yes (Hospitalization)
  Sender: FDA-Public Use
  Company Number: FR-ASTRAZENECA-2016SF05063

PATIENT
  Age: 917 Month
  Sex: Female

DRUGS (11)
  1. OROCAL D3 [Concomitant]
     Active Substance: CALCIUM CARBONATE\CHOLECALCIFEROL
     Route: 048
  2. XEROQUEL [Suspect]
     Active Substance: QUETIAPINE FUMARATE
     Indication: BIPOLAR DISORDER
     Route: 048
     Dates: end: 20160702
  3. HALDOL [Suspect]
     Active Substance: HALOPERIDOL
     Indication: BIPOLAR DISORDER
     Dosage: 10 DROPS ON MORNING, 10 DROPS AT NOON AND 15 DROPS ON EVENING, DAILY
     Route: 048
  4. NOCTAMIDE [Concomitant]
     Active Substance: LORMETAZEPAM
     Route: 048
     Dates: end: 20160702
  5. TERCIAN [Suspect]
     Active Substance: CYAMEMAZINE
     Indication: BIPOLAR DISORDER
     Route: 048
  6. CYMBALTA [Concomitant]
     Active Substance: DULOXETINE HYDROCHLORIDE
     Route: 048
  7. XANAX [Concomitant]
     Active Substance: ALPRAZOLAM
     Route: 048
     Dates: end: 20160702
  8. XANAX [Concomitant]
     Active Substance: ALPRAZOLAM
     Route: 048
     Dates: start: 20160702
  9. MOVICOL [Concomitant]
     Active Substance: POLYETHYLENE GLYCOL 3350\POTASSIUM CHLORIDE\SODIUM BICARBONATE\SODIUM CHLORIDE
     Route: 048
     Dates: start: 20160702
  10. HEPT A MYL [Concomitant]
     Active Substance: HEPTAMINOL HYDROCHLORIDE
     Route: 048
  11. IMOVANE [Concomitant]
     Active Substance: ZOPICLONE
     Route: 048
     Dates: start: 20160702

REACTIONS (16)
  - Anxiety [Unknown]
  - Dehydration [Unknown]
  - Rhabdomyolysis [Unknown]
  - Cogwheel rigidity [Unknown]
  - Dysuria [Unknown]
  - Unresponsive to stimuli [Unknown]
  - Tremor [Unknown]
  - Hepatocellular injury [Unknown]
  - Confusional state [Unknown]
  - Disorientation [Unknown]
  - Neuroleptic malignant syndrome [Recovered/Resolved]
  - Spinal disorder [Unknown]
  - Hypotonia [Unknown]
  - Malnutrition [Unknown]
  - Constipation [Unknown]
  - Weight decreased [Unknown]

NARRATIVE: CASE EVENT DATE: 201607
